FAERS Safety Report 9324198 (Version 2)
Quarter: 2013Q3

REPORT INFORMATION
  Report Type: Spontaneous
  Country: US (occurrence: US)
  Receive Date: 20130603
  Receipt Date: 20130805
  Transmission Date: 20140515
  Serious: Yes (Other)
  Sender: FDA-Public Use
  Company Number: US-ELI_LILLY_AND_COMPANY-US201305009240

PATIENT
  Age: 52 Year
  Sex: Female

DRUGS (4)
  1. GEMCITABINE HYDROCHLORIDE [Suspect]
     Indication: PANCREATIC CARCINOMA
     Dosage: 1000 MG/M2, OTHER
  2. GEMCITABINE HYDROCHLORIDE [Suspect]
     Dosage: 600 MG/M2, OTHER
  3. GEMCITABINE HYDROCHLORIDE [Suspect]
     Dosage: 1000 MG/M2, OTHER
  4. PACLITAXEL [Concomitant]
     Indication: PANCREATIC CARCINOMA
     Dosage: 100 MG/M2, UNKNOWN

REACTIONS (5)
  - Ascites [Recovered/Resolved]
  - Fatigue [Recovered/Resolved]
  - Thrombocytopenia [Recovered/Resolved]
  - Neutropenia [Recovered/Resolved]
  - Anaemia [Recovered/Resolved]
